FAERS Safety Report 4143742 (Version 2)
Quarter: 2020Q3

REPORT INFORMATION
  Report Type: Report from Study
  Country: US (occurrence: US)
  Receive Date: 20040512
  Receipt Date: 20041007
  Transmission Date: 20201105
  Serious: Yes (Life-Threatening)
  Sender: FDA-Public Use
  Company Number: US-JNJFOC-20040500465

PATIENT
  Age: 38 Year
  Sex: Male
  Weight: 80.74 kg

DRUGS (6)
  1. PLACEBO [Suspect]
     Active Substance: UNSPECIFIED INGREDIENT
     Route: 042
  2. PLACEBO [Suspect]
     Active Substance: UNSPECIFIED INGREDIENT
     Route: 042
  3. INFLIXIMAB [Suspect]
     Active Substance: INFLIXIMAB
     Route: 042
  4. INFLIXIMAB [Suspect]
     Active Substance: INFLIXIMAB
     Indication: PSORIASIS
     Route: 042
  5. INFLIXIMAB [Suspect]
     Active Substance: INFLIXIMAB
     Route: 042
  6. PLACEBO [Suspect]
     Active Substance: UNSPECIFIED INGREDIENT
     Indication: PSORIASIS
     Route: 042

REACTIONS (8)
  - Pulmonary tuberculosis [Recovering/Resolving]
  - Pneumonia [None]
  - Lymphadenopathy [None]
  - Hilar lymphadenopathy [None]
  - Pulmonary granuloma [None]
  - Upper respiratory tract infection [None]
  - Necrosis [None]
  - Acid fast bacilli infection [None]

NARRATIVE: CASE EVENT DATE: 20040426
